FAERS Safety Report 9927492 (Version 1)
Quarter: 2014Q1

REPORT INFORMATION
  Report Type: Spontaneous
  Country: FR (occurrence: FR)
  Receive Date: 20140227
  Receipt Date: 20140227
  Transmission Date: 20141002
  Serious: Yes (Life-Threatening, Hospitalization)
  Sender: FDA-Public Use
  Company Number: FR-ROCHE-1352692

PATIENT
  Age: 67 Year
  Sex: Male

DRUGS (3)
  1. CYMEVAN [Suspect]
     Indication: CYTOMEGALOVIRUS INFECTION
     Dosage: TREATMENT DURATION= 39 DAYS
     Route: 042
     Dates: start: 20131121, end: 20131229
  2. CYMEVAN [Suspect]
     Dosage: EVERY 12 HOUR
     Route: 042
     Dates: start: 20140117
  3. ORBENINE [Concomitant]
     Route: 042

REACTIONS (5)
  - Metabolic acidosis [Not Recovered/Not Resolved]
  - Hyperglycaemia [Not Recovered/Not Resolved]
  - Hepatocellular injury [Not Recovered/Not Resolved]
  - Anaemia [Not Recovered/Not Resolved]
  - Thrombocytopenia [Not Recovered/Not Resolved]
